FAERS Safety Report 4542230-4 (Version None)
Quarter: 2004Q4

REPORT INFORMATION
  Report Type: 
  Country: None (occurrence: None)
  Receive Date: 20041230
  Receipt Date: 20041222
  Transmission Date: 20050328
  Serious: Yes (Life-Threatening)
  Sender: FDA-Public Use
  Company Number: FR-BRISTOL-MYERS SQUIBB COMPANY-12803839

PATIENT
  Age: 72 Year
  Sex: Female
  Weight: 34 kg

DRUGS (6)
  1. AMIKACIN SULFATE [Suspect]
     Route: 042
     Dates: start: 20041001, end: 20041005
  2. FLAGYL [Suspect]
     Route: 042
     Dates: start: 20040928
  3. HEPARINE SODIQUE [Suspect]
     Route: 042
     Dates: start: 20040928, end: 20041002
  4. FENTANYL CITRATE [Suspect]
     Route: 042
     Dates: start: 20041001, end: 20041005
  5. MIDAZOLAM HCL [Concomitant]
     Dates: start: 20041001, end: 20041005
  6. DYNASTAT [Concomitant]
     Dates: start: 20040928

REACTIONS (2)
  - SEPTIC SHOCK [None]
  - THROMBOCYTOPENIA [None]
